FAERS Safety Report 8361089-0 (Version None)
Quarter: 2012Q2

REPORT INFORMATION
  Report Type: 
  Country: None (occurrence: None)
  Receive Date: 20120514
  Receipt Date: 20120427
  Transmission Date: 20120825
  Serious: Yes (Hospitalization)
  Sender: FDA-Public Use
  Company Number: 2012MA005631

PATIENT
  Age: 87 Year
  Sex: Female

DRUGS (3)
  1. DOXAZOSIN MESYLATE [Concomitant]
  2. AMLODIPINE BESYLATE [Concomitant]
  3. RAMIPRIL [Suspect]
     Indication: HYPERTENSION
     Dosage: 10 MG;QD;PO
     Route: 048
     Dates: start: 20120218, end: 20120227

REACTIONS (1)
  - TOXIC SKIN ERUPTION [None]
